FAERS Safety Report 4734709-7 (Version None)
Quarter: 2005Q3

REPORT INFORMATION
  Report Type: 
  Country: None (occurrence: None)
  Receive Date: 20050721
  Receipt Date: 20040421
  Transmission Date: 20060218
  Serious: No
  Sender: FDA-Public Use
  Company Number: 2005SP000309

PATIENT
  Age: 62 Year
  Sex: Male

DRUGS (3)
  1. LUNESTA [Suspect]
     Dosage: ORAL
     Route: 048
  2. BENICAR [Concomitant]
  3. TRAZEDINE [Concomitant]

REACTIONS (1)
  - SUICIDAL IDEATION [None]
